FAERS Safety Report 18053657 (Version 1)
Quarter: 2020Q3

REPORT INFORMATION
  Report Type: Spontaneous
  Country: US (occurrence: US)
  Receive Date: 20200721
  Receipt Date: 20200721
  Transmission Date: 20201103
  Serious: No
  Sender: FDA-Public Use
  Company Number: None

PATIENT
  Sex: Male

DRUGS (1)
  1. HALOPERIDOL. [Suspect]
     Active Substance: HALOPERIDOL
     Dates: start: 20120203, end: 20190918

REACTIONS (2)
  - Drooling [None]
  - Swollen tongue [None]

NARRATIVE: CASE EVENT DATE: 20190918
